FAERS Safety Report 14259170 (Version 1)
Quarter: 2017Q4

REPORT INFORMATION
  Report Type: Spontaneous
  Country: JP (occurrence: JP)
  Receive Date: 20171207
  Receipt Date: 20171207
  Transmission Date: 20180321
  Serious: Yes (Hospitalization)
  Sender: FDA-Public Use
  Company Number: JP-BAYER-2017-231659

PATIENT
  Age: 67 Year
  Sex: Female

DRUGS (8)
  1. LOSARTAN POTASSIUM. [Concomitant]
     Active Substance: LOSARTAN POTASSIUM
     Dosage: 25 MG, QD
     Route: 048
  2. METFORMIN [Concomitant]
     Active Substance: METFORMIN HYDROCHLORIDE
     Dosage: 500 MG, BID
     Route: 048
  3. BISOPROLOL FUMARATE. [Concomitant]
     Active Substance: BISOPROLOL FUMARATE
     Dosage: 2 DF, BID
     Route: 048
  4. HUMALOG MIX [INSULIN LISPRO] [Concomitant]
     Dosage: MORNING5U, NOON6U, EVENING6U, TID
     Route: 058
  5. DIGOSIN [Concomitant]
     Active Substance: DIGOXIN
     Dosage: 0.125 MG, QD
     Route: 048
  6. SITAGLIPTIN [Concomitant]
     Active Substance: SITAGLIPTIN
     Dosage: 50 MG, QD
     Route: 048
  7. ROSUVASTATIN. [Concomitant]
     Active Substance: ROSUVASTATIN
     Dosage: 2.5 MG, QD
     Route: 048
  8. BAYASPIRIN 100 MG [Suspect]
     Active Substance: ASPIRIN
     Dosage: 100 MG, QD
     Route: 048

REACTIONS (4)
  - Cardiac failure acute [Recovered/Resolved]
  - Ventricular tachycardia [Recovered/Resolved]
  - Pulmonary congestion [Recovered/Resolved]
  - Poverty of speech [None]

NARRATIVE: CASE EVENT DATE: 20141229
